FAERS Safety Report 17258232 (Version 1)
Quarter: 2020Q1

REPORT INFORMATION
  Report Type: Report from Study
  Country: CA (occurrence: CA)
  Receive Date: 20200110
  Receipt Date: 20200110
  Transmission Date: 20200409
  Serious: Yes (Other)
  Sender: FDA-Public Use
  Company Number: CA-PFIZER INC-2020008928

PATIENT
  Age: 40 Year
  Sex: Male

DRUGS (7)
  1. AMEVIVE [Concomitant]
     Active Substance: ALEFACEPT
     Route: 065
  2. METHOTREXATE SODIUM. [Suspect]
     Active Substance: METHOTREXATE SODIUM
     Route: 065
  3. COSENTYX [Suspect]
     Active Substance: SECUKINUMAB
     Indication: PSORIASIS
     Dosage: 450 MG, MONTHLY
     Route: 058
  4. BETAMETHASONE DIPROPIONATE/CALCIPOTRIOL [Concomitant]
     Route: 065
  5. COAL TAR. [Concomitant]
     Active Substance: COAL TAR
     Route: 065
  6. COSENTYX [Suspect]
     Active Substance: SECUKINUMAB
     Indication: PSORIATIC ARTHROPATHY
     Dosage: 300 MG, MONTHLY
     Route: 058
  7. STELARA [Concomitant]
     Active Substance: USTEKINUMAB
     Route: 065

REACTIONS (2)
  - Drug ineffective [Not Recovered/Not Resolved]
  - Psoriatic arthropathy [Not Recovered/Not Resolved]
